FAERS Safety Report 20069312 (Version 2)
Quarter: 2021Q4

REPORT INFORMATION
  Report Type: Spontaneous
  Country: ES (occurrence: ES)
  Receive Date: 20211115
  Receipt Date: 20211203
  Transmission Date: 20220303
  Serious: Yes (Other)
  Sender: FDA-Public Use
  Company Number: ES-PFIZER INC-202101556469

PATIENT
  Age: 75 Year
  Sex: Male

DRUGS (2)
  1. GLASDEGIB [Suspect]
     Active Substance: GLASDEGIB
  2. CYTARABINE [Suspect]
     Active Substance: CYTARABINE
     Dosage: LOW DOSE

REACTIONS (10)
  - Febrile neutropenia [Unknown]
  - Pancytopenia [Unknown]
  - Asthenia [Unknown]
  - Muscle spasms [Unknown]
  - Dysgeusia [Unknown]
  - Transaminases increased [Unknown]
  - Decreased appetite [Unknown]
  - Weight decreased [Unknown]
  - Alopecia [Unknown]
  - Upper respiratory tract infection [Unknown]
